FAERS Safety Report 5568701-X (Version None)
Quarter: 2007Q4

REPORT INFORMATION
  Report Type: 
  Country: None (occurrence: None)
  Receive Date: 20071220
  Receipt Date: 20061103
  Transmission Date: 20080405
  Serious: No
  Sender: FDA-Public Use
  Company Number: A0626153A

PATIENT
  Age: 50 Year
  Sex: Male

DRUGS (8)
  1. AVODART [Suspect]
     Dosage: .5MG PER DAY
     Route: 048
  2. PROTONIX [Concomitant]
  3. RANITIDINE HCL [Concomitant]
  4. CARAFATE [Concomitant]
  5. FLONASE [Concomitant]
  6. LORATADINE [Concomitant]
  7. ATENOLOL [Concomitant]
  8. GEMFIBROZIL [Concomitant]

REACTIONS (3)
  - DYSPNOEA [None]
  - MUSCULOSKELETAL CHEST PAIN [None]
  - SWELLING [None]
